FAERS Safety Report 5823519-5 (Version None)
Quarter: 2008Q3

REPORT INFORMATION
  Report Type: 
  Country: None (occurrence: None)
  Receive Date: 20080725
  Receipt Date: 20080715
  Transmission Date: 20090109
  Serious: Yes (Hospitalization)
  Sender: FDA-Public Use
  Company Number: US-PFIZER INC-2008058594

PATIENT
  Sex: Female

DRUGS (3)
  1. PREDNISONE TAB [Suspect]
  2. SULFASALAZINE [Suspect]
  3. ETANERCEPT [Suspect]
     Indication: RHEUMATOID ARTHRITIS
     Dosage: DAILY DOSE:25MG
     Route: 058

REACTIONS (1)
  - VASCULAR GRAFT [None]
